FAERS Safety Report 5330041-1 (Version None)
Quarter: 2007Q2

REPORT INFORMATION
  Report Type: 
  Country: None (occurrence: None)
  Receive Date: 20070521
  Receipt Date: 20070509
  Transmission Date: 20071010
  Serious: Yes (Hospitalization)
  Sender: FDA-Public Use
  Company Number: JP-ELI_LILLY_AND_COMPANY-JP200705002185

PATIENT
  Age: 30 Year
  Sex: Female
  Weight: 53 kg

DRUGS (3)
  1. ZYPREXA [Suspect]
     Indication: DEPRESSION
     Dosage: 2.5 MG, DAILY (1/D)
     Route: 048
     Dates: start: 20070101, end: 20070428
  2. RIVOTRIL [Concomitant]
     Indication: DEPRESSION
     Dosage: 0.5 MG, DAILY (1/D)
     Route: 048
     Dates: start: 20070101, end: 20070428
  3. TOLEDOMIN [Concomitant]
     Indication: DEPRESSION
     Dosage: 15 MG, DAILY (1/D)
     Route: 048
     Dates: start: 20070101, end: 20070428

REACTIONS (4)
  - DYSPNOEA [None]
  - GENERALISED OEDEMA [None]
  - HYPOVENTILATION [None]
  - PLEURAL EFFUSION [None]
